FAERS Safety Report 15291899 (Version 2)
Quarter: 2023Q1

REPORT INFORMATION
  Report Type: Spontaneous
  Country: US (occurrence: US)
  Receive Date: 20180817
  Receipt Date: 20230327
  Transmission Date: 20230418
  Serious: Yes (Hospitalization, Other)
  Sender: FDA-Public Use
  Company Number: US-009507513-1808USA006018

PATIENT
  Age: 84 Year
  Sex: Female

DRUGS (15)
  1. KEYTRUDA [Suspect]
     Active Substance: PEMBROLIZUMAB
     Indication: Product used for unknown indication
     Dosage: 21 CYCLES
     Route: 065
     Dates: start: 20160331, end: 20170515
  2. AVELUMAB [Suspect]
     Active Substance: AVELUMAB
     Indication: Non-small cell lung cancer
     Dosage: 10 MG/KG, EVERY 2 WEEKS (Q2WEEKS).
     Route: 042
     Dates: start: 20170720, end: 20171026
  3. IVUXOLIMAB [Suspect]
     Active Substance: IVUXOLIMAB
     Indication: Non-small cell lung cancer
     Dosage: 3 MG/KG, EVERY 2 WEEKS (Q2WEEKS).
     Route: 042
     Dates: start: 20170720, end: 20171026
  4. ATIVAN [Concomitant]
     Active Substance: LORAZEPAM
     Indication: Anxiety
  5. CENTRUM SILVER [ASCORBIC ACID;BETACAROTENE;BIOTIN;CALCIUM;CHROMIUM;COL [Concomitant]
     Indication: Routine health maintenance
  6. MELATONIN [Concomitant]
     Active Substance: MELATONIN
     Indication: Insomnia
  7. ECOTRIN [Concomitant]
     Active Substance: ASPIRIN
     Indication: Cardiac disorder
  8. HYPROMELLOSE 2910 (4000 MPA.S) [Concomitant]
     Active Substance: HYPROMELLOSE 2910 (4000 MPA.S)
     Indication: Dry eye
  9. ASCORBIC ACID;FERROUS GLUCONATE [Concomitant]
     Indication: Iron deficiency anaemia
  10. LIDOCAINE [Concomitant]
     Active Substance: LIDOCAINE
     Indication: Pain
  11. OMEPRAZOLE [Concomitant]
     Active Substance: OMEPRAZOLE
     Indication: Gastrooesophageal reflux disease
  12. ONDANSETRON [Concomitant]
     Active Substance: ONDANSETRON
     Indication: Nausea
  13. OXYCODONE [Concomitant]
     Active Substance: OXYCODONE
     Indication: Pain
  14. TOPROL XL [Concomitant]
     Active Substance: METOPROLOL SUCCINATE
     Indication: Palpitations
  15. DENOSUMAB [Concomitant]
     Active Substance: DENOSUMAB
     Indication: Bone disorder

REACTIONS (6)
  - Pemphigoid [Not Recovered/Not Resolved]
  - Basedow^s disease [Recovered/Resolved]
  - Gastrointestinal arteriovenous malformation [Not Recovered/Not Resolved]
  - Colorectal adenoma [Not Recovered/Not Resolved]
  - Hyperlipidaemia [Not Recovered/Not Resolved]
  - Hypothyroidism [Not Recovered/Not Resolved]

NARRATIVE: CASE EVENT DATE: 20160601
